FAERS Safety Report 9607868 (Version 1)
Quarter: 2013Q4

REPORT INFORMATION
  Report Type: Spontaneous
  Country: US (occurrence: US)
  Receive Date: 20131009
  Receipt Date: 20131009
  Transmission Date: 20140711
  Serious: Yes (Other)
  Sender: FDA-Public Use
  Company Number: US-TEVA-436805USA

PATIENT
  Sex: Female

DRUGS (2)
  1. AMRIX [Suspect]
     Dosage: 15 MILLIGRAM DAILY;
  2. METHADONE [Suspect]
     Dosage: 10 MILLIGRAM DAILY;

REACTIONS (3)
  - Throat tightness [Recovered/Resolved]
  - Dyspnoea [Recovered/Resolved]
  - Confusional state [Recovered/Resolved]
